FAERS Safety Report 6659531-6 (Version None)
Quarter: 2010Q1

REPORT INFORMATION
  Report Type: 
  Country: None (occurrence: None)
  Receive Date: 20100330
  Receipt Date: 20100315
  Transmission Date: 20100710
  Serious: Yes (Other)
  Sender: FDA-Public Use
  Company Number: ES-JNJFOC-20100204055

PATIENT
  Age: 83 Year
  Sex: Female

DRUGS (1)
  1. ZALDIAR [Suspect]
     Indication: HUMERUS FRACTURE
     Dosage: PER DAY
     Route: 048

REACTIONS (3)
  - DISORIENTATION [None]
  - HALLUCINATION [None]
  - URINARY INCONTINENCE [None]
